FAERS Safety Report 9458753 (Version 1)
Quarter: 2013Q3

REPORT INFORMATION
  Report Type: Spontaneous
  Country: US (occurrence: US)
  Receive Date: 20130814
  Receipt Date: 20130814
  Transmission Date: 20140515
  Serious: No
  Sender: FDA-Public Use
  Company Number: US-TARO-2013P1003682

PATIENT
  Age: 33 Year
  Sex: Male
  Weight: 70.31 kg

DRUGS (1)
  1. FLUOCINONIDE CREAM USP 0.05% [Suspect]
     Route: 061
     Dates: start: 20120606

REACTIONS (1)
  - Drug ineffective [Not Recovered/Not Resolved]
